FAERS Safety Report 11943376 (Version 2)
Quarter: 2016Q3

REPORT INFORMATION
  Report Type: Spontaneous
  Country: US (occurrence: US)
  Receive Date: 20160125
  Receipt Date: 20160729
  Transmission Date: 20161109
  Serious: Yes (Hospitalization, Other)
  Sender: FDA-Public Use
  Company Number: US-UNITED THERAPEUTICS-UNT-2015-011127

PATIENT
  Age: 47 Year
  Sex: Female
  Weight: 68.27 kg

DRUGS (4)
  1. REVATIO [Concomitant]
     Active Substance: SILDENAFIL CITRATE
     Indication: PRODUCT USED FOR UNKNOWN INDICATION
  2. LETAIRIS [Suspect]
     Active Substance: AMBRISENTAN
     Indication: PULMONARY HYPERTENSION
     Dosage: 10 MG, QD
     Route: 065
     Dates: start: 20130404
  3. LETAIRIS [Suspect]
     Active Substance: AMBRISENTAN
     Indication: DRUG ABUSE
  4. REMODULIN [Suspect]
     Active Substance: TREPROSTINIL
     Indication: PULMONARY HYPERTENSION
     Dosage: 0.092 ?G/KG/MIN, CONTINUING
     Route: 041
     Dates: start: 20140806, end: 20151213

REACTIONS (18)
  - Dermatitis contact [Recovered/Resolved]
  - Nausea [Recovered/Resolved]
  - Injection site infection [Unknown]
  - Pruritus generalised [Not Recovered/Not Resolved]
  - Flushing [Recovered/Resolved]
  - Injection site pain [Unknown]
  - Accidental overdose [Recovered/Resolved]
  - Device dislocation [Recovered/Resolved]
  - Malaise [Recovered/Resolved]
  - Injection site cellulitis [Recovered/Resolved]
  - Drug dose omission [Recovered/Resolved]
  - Complication associated with device [Recovered/Resolved]
  - Device occlusion [Recovered/Resolved]
  - Sepsis [Recovered/Resolved]
  - Injection site pruritus [Recovered/Resolved]
  - Injection site exfoliation [Recovered/Resolved]
  - Injection site discharge [Recovered/Resolved]
  - Herpes zoster [Not Recovered/Not Resolved]

NARRATIVE: CASE EVENT DATE: 201509
